FAERS Safety Report 25917024 (Version 1)
Quarter: 2025Q4

REPORT INFORMATION
  Report Type: Spontaneous
  Country: JP (occurrence: JP)
  Receive Date: 20251014
  Receipt Date: 20251014
  Transmission Date: 20260119
  Serious: Yes (Life-Threatening, Other)
  Sender: MERCK SHARP & DOHME LLC
  Company Number: JP-009507513-2337017

PATIENT
  Age: 81 Year
  Sex: Female

DRUGS (2)
  1. KEYTRUDA [Suspect]
     Active Substance: PEMBROLIZUMAB
     Indication: Lung squamous cell carcinoma stage IV
     Route: 041
     Dates: start: 202403, end: 2024
  2. NINTEDANIB [Concomitant]
     Active Substance: NINTEDANIB

REACTIONS (2)
  - Enterocolitis [Recovered/Resolved]
  - Immune-mediated lung disease [Recovered/Resolved]

NARRATIVE: CASE EVENT DATE: 20240601
